FAERS Safety Report 10608992 (Version 1)
Quarter: 2014Q4

REPORT INFORMATION
  Report Type: Spontaneous
  Country: IT (occurrence: IT)
  Receive Date: 20141125
  Receipt Date: 20141125
  Transmission Date: 20150529
  Serious: Yes (Other)
  Sender: FDA-Public Use
  Company Number: PHHY2014IT151541

PATIENT
  Sex: Male

DRUGS (6)
  1. LEVOFOLINATE CALCIUM [Concomitant]
     Active Substance: LEUCOVORIN CALCIUM
     Dosage: 360 MG, UNK
  2. IRINOTECAN [Suspect]
     Active Substance: IRINOTECAN
     Indication: RECTAL CANCER
     Dosage: 320 MG, UNK (CYCLIC)
     Route: 042
     Dates: start: 20140612
  3. TERAPROST [Concomitant]
     Dosage: 0.5 DF, UNK
     Route: 048
  4. FLUOROURACIL. [Suspect]
     Active Substance: FLUOROURACIL
     Indication: RECTAL CANCER
     Dosage: 720 MG, UNK  (CYCLIC)
     Route: 042
     Dates: start: 20140612
  5. AVASTIN [Suspect]
     Active Substance: BEVACIZUMAB
     Indication: RECTAL CANCER
     Dosage: 350 MG, UNK  (CYCLIC)
     Route: 042
     Dates: start: 20140612
  6. FLUOROURACIL. [Suspect]
     Active Substance: FLUOROURACIL
     Dosage: 4320 MG, UNK  (CYCLIC)
     Route: 042
     Dates: start: 20140612

REACTIONS (2)
  - Leukopenia [Not Recovered/Not Resolved]
  - Neutropenia [Not Recovered/Not Resolved]

NARRATIVE: CASE EVENT DATE: 20140701
